FAERS Safety Report 4699044-4 (Version None)
Quarter: 2005Q2

REPORT INFORMATION
  Report Type: 
  Country: None (occurrence: None)
  Receive Date: 20050622
  Receipt Date: 20050622
  Transmission Date: 20051028
  Serious: Yes (Hospitalization)
  Sender: FDA-Public Use
  Company Number: None

PATIENT
  Age: 76 Year
  Sex: Female
  Weight: 45.3597 kg

DRUGS (1)
  1. KEFLEX [Suspect]
     Indication: POSTOPERATIVE CARE
     Dosage: QTY 40-2 DA 10 DA
     Dates: start: 20050428, end: 20050507

REACTIONS (2)
  - CEREBROVASCULAR ACCIDENT [None]
  - MENTAL STATUS CHANGES [None]
